FAERS Safety Report 5426135-2 (Version None)
Quarter: 2007Q3

REPORT INFORMATION
  Report Type: 
  Country: None (occurrence: None)
  Receive Date: 20070827
  Receipt Date: 20070821
  Transmission Date: 20080115
  Serious: Yes (Life-Threatening, Hospitalization)
  Sender: FDA-Public Use
  Company Number: JP-ASTRAZENECA-2004SE03748

PATIENT
  Age: 56 Year
  Sex: Male

DRUGS (6)
  1. CANDESARTAN CILEXETIL [Suspect]
     Indication: HYPERTENSION
     Route: 048
     Dates: start: 20040416, end: 20040615
  2. WARFARIN SODIUM [Suspect]
     Route: 048
     Dates: start: 20040410, end: 20040615
  3. WARFARIN SODIUM [Suspect]
     Route: 048
  4. FAMOTIDINE [Suspect]
     Route: 048
     Dates: start: 20040416, end: 20040615
  5. RYTHMODAN R [Suspect]
     Route: 048
     Dates: start: 20040423, end: 20040615
  6. PERSANTIN [Suspect]
     Route: 048
     Dates: start: 20040423, end: 20040615

REACTIONS (4)
  - ACUTE HEPATIC FAILURE [None]
  - HEPATIC ATROPHY [None]
  - HEPATITIS FULMINANT [None]
  - RESPIRATORY RATE INCREASED [None]
